FAERS Safety Report 7651393-3 (Version None)
Quarter: 2011Q3

REPORT INFORMATION
  Report Type: 
  Country: None (occurrence: None)
  Receive Date: 20110802
  Receipt Date: 20110721
  Transmission Date: 20111222
  Serious: Yes (Other)
  Sender: FDA-Public Use
  Company Number: PHHY2011US66364

PATIENT
  Age: 33 Year
  Sex: Female

DRUGS (3)
  1. GILENYA [Suspect]
     Indication: MULTIPLE SCLEROSIS
     Dosage: 0.5 MG/DAILY
     Dates: start: 20110223, end: 20110713
  2. MINOCYCLINE HCL [Concomitant]
     Indication: ACNE
     Dosage: 100 MG/DAILY
     Route: 048
     Dates: start: 20110221
  3. PROVIGIL [Concomitant]
     Indication: FATIGUE
     Dosage: 100 MG, UNK
     Dates: start: 20110301

REACTIONS (1)
  - ACUTE HEPATIC FAILURE [None]
